FAERS Safety Report 8822042 (Version 2)
Quarter: 2013Q3

REPORT INFORMATION
  Report Type: Spontaneous
  Country: TR (occurrence: TR)
  Receive Date: 20121003
  Receipt Date: 20130930
  Transmission Date: 20140515
  Serious: Yes (Other)
  Sender: FDA-Public Use
  Company Number: TR-AMGEN-TURSP2012040670

PATIENT
  Age: 57 Year
  Sex: Female

DRUGS (3)
  1. ENBREL [Suspect]
     Indication: ANKYLOSING SPONDYLITIS
     Dosage: 50 (25+25) MG, WEEKLY
     Route: 058
     Dates: start: 201112, end: 20120820
  2. ENBREL [Suspect]
     Dosage: 50 (25+25) MG, WEEKLY
     Route: 058
  3. ENDOL                              /00003801/ [Concomitant]
     Indication: ANKYLOSING SPONDYLITIS
     Dosage: 100 MG, WEEKLY
     Route: 054

REACTIONS (10)
  - Abdominal pain upper [Recovered/Resolved]
  - Gastrointestinal disorder [Recovered/Resolved]
  - Amoebic dysentery [Recovered/Resolved]
  - Pain [Not Recovered/Not Resolved]
  - C-reactive protein increased [Not Recovered/Not Resolved]
  - Red blood cell sedimentation rate increased [Not Recovered/Not Resolved]
  - Pyrexia [Recovered/Resolved]
  - Back pain [Not Recovered/Not Resolved]
  - Pharyngitis [Recovered/Resolved]
  - Influenza [Recovered/Resolved]
